FAERS Safety Report 5247549-X (Version None)
Quarter: 2007Q1

REPORT INFORMATION
  Report Type: 
  Country: None (occurrence: None)
  Receive Date: 20070227
  Receipt Date: 20070213
  Transmission Date: 20070707
  Serious: Yes (Other)
  Sender: FDA-Public Use
  Company Number: PHHO2007NZ03141

PATIENT
  Sex: Male

DRUGS (1)
  1. CLOZARIL [Suspect]
     Indication: SCHIZOPHRENIA
     Dosage: 200 MG, QD
     Route: 048
     Dates: start: 19941101, end: 20040503

REACTIONS (4)
  - CONVULSION [None]
  - DRUG INEFFECTIVE [None]
  - LUNG ABSCESS [None]
  - WHITE BLOOD CELL COUNT DECREASED [None]
